FAERS Safety Report 4433759-8 (Version None)
Quarter: 2004Q3

REPORT INFORMATION
  Report Type: 
  Country: None (occurrence: None)
  Receive Date: 20040824
  Receipt Date: 20040824
  Transmission Date: 20050211
  Serious: Yes (Hospitalization)
  Sender: FDA-Public Use
  Company Number: None

PATIENT
  Age: 30 Year
  Sex: Male

DRUGS (3)
  1. SOLU-MEDROL [Suspect]
     Indication: PRURITUS
     Dosage: 125 MG IV
     Route: 042
     Dates: start: 20040729
  2. BENADRYL [Suspect]
     Indication: PRURITUS
     Dosage: 50 MG IV
     Route: 042
     Dates: start: 20040729
  3. BUSPAR [Concomitant]

REACTIONS (1)
  - GRAND MAL CONVULSION [None]
